FAERS Safety Report 5958657-X (Version None)
Quarter: 2008Q4

REPORT INFORMATION
  Report Type: 
  Country: None (occurrence: None)
  Receive Date: 20081110
  Receipt Date: 20081012
  Transmission Date: 20090506
  Serious: Yes (Death, Other)
  Sender: FDA-Public Use
  Company Number: CHPA2008US18064

PATIENT
  Age: 50 Year
  Sex: Male

DRUGS (3)
  1. ACETYLSALICYLIC ACID SRT [Suspect]
     Dosage: 300 TABLETS, ORAL
     Route: 048
  2. ETHANOL (ETHANOL) [Suspect]
     Dosage: ORAL
     Route: 048
  3. BENZODIAZEPINES (NO INGREDIENTS/SUBSTANCES) [Suspect]
     Dosage: ORAL
     Route: 048

REACTIONS (8)
  - AGITATION [None]
  - ARRHYTHMIA [None]
  - CARDIAC ARREST [None]
  - COMPLETED SUICIDE [None]
  - HAEMODIALYSIS [None]
  - INCORRECT DOSE ADMINISTERED [None]
  - INCORRECT ROUTE OF DRUG ADMINISTRATION [None]
  - TORSADE DE POINTES [None]
